FAERS Safety Report 10912757 (Version 2)
Quarter: 2015Q2

REPORT INFORMATION
  Report Type: Spontaneous
  Country: US (occurrence: None)
  Receive Date: 20150310
  Receipt Date: 20150422
  Transmission Date: 20150821
  Serious: Yes (Hospitalization)
  Sender: FDA-Public Use
  Company Number: 2015AP007140

PATIENT
  Age: 71 Year
  Sex: Male
  Weight: 77 kg

DRUGS (6)
  1. JAKAFI (RUXOLITINIB PHOSPHATE) [Concomitant]
  2. LISINOPRIL. [Concomitant]
     Active Substance: LISINOPRIL
  3. ALLOPURINOL. [Concomitant]
     Active Substance: ALLOPURINOL
  4. CALCITRIOL. [Concomitant]
     Active Substance: CALCITRIOL
  5. FERRIPROX [Suspect]
     Active Substance: DEFERIPRONE
     Indication: MYELOFIBROSIS
     Route: 048
     Dates: start: 20141105, end: 20141226
  6. FERRIPROX [Suspect]
     Active Substance: DEFERIPRONE
     Indication: IRON OVERLOAD
     Route: 048
     Dates: start: 20141105, end: 20141226

REACTIONS (2)
  - Musculoskeletal chest pain [None]
  - Splenomegaly [None]

NARRATIVE: CASE EVENT DATE: 20141225
